FAERS Safety Report 7426925-0 (Version None)
Quarter: 2011Q2

REPORT INFORMATION
  Report Type: 
  Country: None (occurrence: None)
  Receive Date: 20110420
  Receipt Date: 20110407
  Transmission Date: 20111010
  Serious: Yes (Hospitalization)
  Sender: FDA-Public Use
  Company Number: US-ELI_LILLY_AND_COMPANY-US200912004341

PATIENT
  Sex: Female

DRUGS (7)
  1. KINERET [Concomitant]
     Indication: ARTHRITIS
     Dosage: UNK, UNKNOWN
     Dates: end: 20100830
  2. FORTEO [Suspect]
     Dosage: 20 UG, DAILY (1/D)
     Dates: start: 20100906
  3. FORTEO [Suspect]
     Dosage: 20 UG, DAILY (1/D)
  4. FORTEO [Suspect]
     Indication: OSTEOPOROSIS
     Dosage: 20 UG, DAILY (1/D)
     Dates: start: 20090421
  5. FORTEO [Suspect]
     Dosage: 20 UG, QD
  6. FORTEO [Suspect]
     Dosage: 20 UG, DAILY (1/D)
  7. PREDNISONE [Concomitant]

REACTIONS (20)
  - BURNING SENSATION [None]
  - FIBULA FRACTURE [None]
  - BODY HEIGHT DECREASED [None]
  - FALL [None]
  - NAUSEA [None]
  - BACK PAIN [None]
  - ASTHMA [None]
  - URTICARIA [None]
  - SPINAL FRACTURE [None]
  - RHEUMATOID ARTHRITIS [None]
  - OEDEMA PERIPHERAL [None]
  - PAIN IN EXTREMITY [None]
  - ERYTHEMA [None]
  - ASTHENIA [None]
  - ARTHRALGIA [None]
  - FEELING ABNORMAL [None]
  - BRONCHITIS [None]
  - ARTHRITIS [None]
  - PNEUMONIA [None]
  - INJECTION SITE HAEMATOMA [None]
